FAERS Safety Report 23278761 (Version 1)
Quarter: 2023Q4

REPORT INFORMATION
  Report Type: Report from Study
  Country: KR (occurrence: KR)
  Receive Date: 20231208
  Receipt Date: 20231208
  Transmission Date: 20240110
  Serious: Yes (Hospitalization)
  Sender: FDA-Public Use
  Company Number: KR-Eisai Medical Research-EC-2023-144079

PATIENT
  Age: 67 Year
  Sex: Male
  Weight: 56.9 kg

DRUGS (16)
  1. LENVATINIB [Suspect]
     Active Substance: LENVATINIB
     Indication: Oesophageal cancer metastatic
     Route: 048
     Dates: start: 20230412, end: 20230702
  2. PEMBROLIZUMAB [Suspect]
     Active Substance: PEMBROLIZUMAB
     Indication: Oesophageal cancer metastatic
     Route: 041
     Dates: start: 20230412, end: 20230524
  3. PEMBROLIZUMAB [Suspect]
     Active Substance: PEMBROLIZUMAB
     Route: 041
     Dates: start: 20230725
  4. PACLITAXEL [Suspect]
     Active Substance: PACLITAXEL
     Indication: Oesophageal cancer metastatic
     Route: 042
     Dates: start: 20230412, end: 20230614
  5. CISPLATIN [Suspect]
     Active Substance: CISPLATIN
     Indication: Oesophageal cancer metastatic
     Route: 042
     Dates: start: 20230412, end: 20230614
  6. ENCOVER [Concomitant]
     Dates: start: 20230412, end: 20230702
  7. METOCLOPRAMIDE HYDROCHLORIDE [Concomitant]
     Active Substance: METOCLOPRAMIDE HYDROCHLORIDE
     Dates: start: 20230412, end: 20230702
  8. ZOLPIDEM [Concomitant]
     Active Substance: ZOLPIDEM TARTRATE
     Dates: start: 20230523, end: 20230725
  9. ESOMEPRAZOLE [Concomitant]
     Active Substance: ESOMEPRAZOLE
     Dates: start: 20230523, end: 20230702
  10. CODEINE [Concomitant]
     Active Substance: CODEINE
     Dates: start: 20230613, end: 20230702
  11. FILGRASTIM [Concomitant]
     Active Substance: FILGRASTIM
     Dates: start: 20230623, end: 20230623
  12. UREA [Concomitant]
     Active Substance: UREA
     Dates: start: 20230502, end: 20230725
  13. NAPROXEN [Concomitant]
     Active Substance: NAPROXEN
     Dates: start: 20230510, end: 20230725
  14. CETAMADOL [Concomitant]
     Dates: start: 20230413, end: 20230702
  15. LACTICARE HC [Concomitant]
     Dates: start: 20230502, end: 20230804
  16. PHAZYME [Concomitant]
     Active Substance: DIMETHICONE 410
     Dates: start: 20230523, end: 20230702

REACTIONS (1)
  - Fistula [Recovering/Resolving]

NARRATIVE: CASE EVENT DATE: 20230703
